FAERS Safety Report 8322343-1 (Version None)
Quarter: 2012Q2

REPORT INFORMATION
  Report Type: 
  Country: None (occurrence: None)
  Receive Date: 20120430
  Receipt Date: 20120417
  Transmission Date: 20120825
  Serious: Yes (Other)
  Sender: FDA-Public Use
  Company Number: US-JNJFOC-20120407414

PATIENT
  Age: 79 Year
  Sex: Male

DRUGS (5)
  1. ASPIRIN [Concomitant]
     Route: 065
  2. ATORVASTATIN [Concomitant]
     Route: 065
  3. CLOPIDOGREL [Concomitant]
     Route: 065
  4. ASACOL [Concomitant]
     Route: 065
  5. INFLIXIMAB, RECOMBINANT [Suspect]
     Indication: CROHN'S DISEASE
     Route: 042

REACTIONS (1)
  - CARDIAC TAMPONADE [None]
